FAERS Safety Report 23213000 (Version 2)
Quarter: 2023Q4

REPORT INFORMATION
  Report Type: Spontaneous
  Country: JP (occurrence: JP)
  Receive Date: 20231121
  Receipt Date: 20231205
  Transmission Date: 20240110
  Serious: Yes (Hospitalization)
  Sender: FDA-Public Use
  Company Number: JP-JNJFOC-20231018361

PATIENT
  Age: 79 Year
  Sex: Female
  Weight: 51 kg

DRUGS (11)
  1. TRACLEER [Suspect]
     Active Substance: BOSENTAN
     Indication: Pulmonary arterial hypertension
     Route: 048
     Dates: end: 202208
  2. OPSUMIT [Concomitant]
     Active Substance: MACITENTAN
     Route: 048
     Dates: start: 202208
  3. OXYGEN [Concomitant]
     Active Substance: OXYGEN
     Dosage: 2L/MIN
     Route: 055
  4. OXYGEN [Concomitant]
     Active Substance: OXYGEN
     Dosage: 1L/MIN
     Route: 055
  5. OXYGEN [Concomitant]
     Active Substance: OXYGEN
     Dosage: 3L/MIN
     Route: 055
  6. OXYGEN [Concomitant]
     Active Substance: OXYGEN
     Dosage: 1.5L/MIN
     Route: 055
  7. FUROSEMIDE [Concomitant]
     Active Substance: FUROSEMIDE
     Route: 065
  8. FUROSEMIDE [Concomitant]
     Active Substance: FUROSEMIDE
     Route: 065
  9. TOLVAPTAN [Concomitant]
     Active Substance: TOLVAPTAN
     Route: 048
  10. TOLVAPTAN [Concomitant]
     Active Substance: TOLVAPTAN
     Route: 048
  11. TECHNETIUM 99MTC ALBUMIN AGGREGATED [Concomitant]
     Dosage: DOSE UNKNOWN
     Route: 065

REACTIONS (2)
  - Cardiac failure chronic [Recovering/Resolving]
  - Pulmonary arterial hypertension [Recovering/Resolving]

NARRATIVE: CASE EVENT DATE: 20220501
